FAERS Safety Report 18306654 (Version 3)
Quarter: 2021Q1

REPORT INFORMATION
  Report Type: Report from Study
  Country: US (occurrence: US)
  Receive Date: 20200924
  Receipt Date: 20210119
  Transmission Date: 20210419
  Serious: Yes (Hospitalization)
  Sender: FDA-Public Use
  Company Number: US-BIOGEN-2020BI00926176

PATIENT
  Age: 37 Year
  Sex: Female

DRUGS (7)
  1. VUMERITY [Suspect]
     Active Substance: DIROXIMEL FUMARATE
     Route: 048
     Dates: start: 20201009
  2. VUMERITY [Suspect]
     Active Substance: DIROXIMEL FUMARATE
     Dosage: 1 CAPSULE IN MORNING UNTIL FURTHER ORDERS
     Route: 048
     Dates: start: 20201020
  3. VUMERITY [Suspect]
     Active Substance: DIROXIMEL FUMARATE
     Dosage: 231 MG /CAPSULE? 1 CAPSULE IN THE MORNING AND 2 CAPSULES AT NIGHT FOR 10 DAYS
     Route: 048
     Dates: start: 20200917
  4. VUMERITY [Suspect]
     Active Substance: DIROXIMEL FUMARATE
     Indication: MULTIPLE SCLEROSIS
     Route: 048
     Dates: start: 20200619, end: 202009
  5. VUMERITY [Suspect]
     Active Substance: DIROXIMEL FUMARATE
     Route: 048
     Dates: start: 202009
  6. VUMERITY [Suspect]
     Active Substance: DIROXIMEL FUMARATE
     Dosage: THEN 1 CAPSULE IN THE MORNING AND 1 CAPSULE AT NIGHT FOR NEXT 10 DAYS
     Route: 048
     Dates: start: 20200928
  7. VUMERITY [Suspect]
     Active Substance: DIROXIMEL FUMARATE
     Route: 048
     Dates: end: 202011

REACTIONS (8)
  - Rash [Unknown]
  - Flushing [Not Recovered/Not Resolved]
  - Hiatus hernia [Unknown]
  - Procedural pain [Unknown]
  - Heart rate increased [Unknown]
  - Gastric disorder [Unknown]
  - Nausea [Unknown]
  - Burning sensation [Recovered/Resolved]

NARRATIVE: CASE EVENT DATE: 20200901
